FAERS Safety Report 5894622-9 (Version None)
Quarter: 2008Q3

REPORT INFORMATION
  Report Type: 
  Country: None (occurrence: None)
  Receive Date: 20080922
  Receipt Date: 20080910
  Transmission Date: 20090109
  Serious: Yes (Hospitalization)
  Sender: FDA-Public Use
  Company Number: AMAN20080015

PATIENT
  Age: 59 Year
  Sex: Female

DRUGS (8)
  1. AMANTADINE HCL [Suspect]
     Dosage: 100 MG, TID,
     Dates: end: 20080701
  2. CLOZARIL [Suspect]
     Indication: ESSENTIAL TREMOR
     Dosage: 75 MG, DAILY, PER ORAL
     Route: 048
     Dates: start: 20080601, end: 20080701
  3. CLOZARIL [Suspect]
     Indication: PARKINSONISM
     Dosage: 75 MG, DAILY, PER ORAL
     Route: 048
     Dates: start: 20080601, end: 20080701
  4. CLOZARIL [Suspect]
     Indication: SCHIZOPHRENIA
     Dosage: 75 MG, DAILY, PER ORAL
     Route: 048
     Dates: start: 20080601, end: 20080701
  5. CELEXA [Suspect]
     Dosage: 20 MG, DAILY,
     Dates: end: 20080701
  6. SEROQUEL [Suspect]
     Dosage: 400 MG, DAILY,
  7. METOPROLOL TARTRATE [Suspect]
     Dosage: 50 MG, DAILY,
  8. RAMIPRIL [Suspect]

REACTIONS (4)
  - DRUG INTOLERANCE [None]
  - DYSPHAGIA [None]
  - DYSPNOEA [None]
  - MYOCLONUS [None]
